FAERS Safety Report 12985017 (Version 1)
Quarter: 2016Q4

REPORT INFORMATION
  Report Type: Spontaneous
  Country: DK (occurrence: DK)
  Receive Date: 20161129
  Receipt Date: 20161129
  Transmission Date: 20170207
  Serious: Yes (Congenital Anomaly)
  Sender: FDA-Public Use
  Company Number: DK-TEVA-713102ACC

PATIENT
  Age: 0 Day
  Sex: Male

DRUGS (4)
  1. QUETIAPINE ^TEVA^ [Suspect]
     Active Substance: QUETIAPINE
     Indication: SCHIZOPHRENIA
     Dosage: DOSE: 150 MG IN THE MORNING AND 400 MG IN THE EVENING
     Route: 050
  2. VENLAFAXIN ^BLUEFISH^ [Suspect]
     Active Substance: VENLAFAXINE HYDROCHLORIDE
     Indication: DEPRESSION
     Dosage: 150 MILLIGRAM DAILY; DOSE: 1 CAPSULE MORNING, STRENGTH: 150 MG
     Route: 050
  3. SIMVASTATIN ^ACTAVIS^ [Suspect]
     Active Substance: SIMVASTATIN
     Indication: HYPERCHOLESTEROLAEMIA
     Dosage: 40 MILLIGRAM DAILY; STRENGTH: 40 MG
     Route: 050
  4. CISORDINOL [Suspect]
     Active Substance: ZUCLOPENTHIXOL
     Indication: SCHIZOPHRENIA
     Dosage: DOSE: 1 TBL. MORNING AND 2 TBL. EVENING, STRENGTH: 2 MG
     Route: 050

REACTIONS (4)
  - Hypospadias [Not Recovered/Not Resolved]
  - Exposure via father [Recovered/Resolved]
  - Ear malformation [Not Recovered/Not Resolved]
  - Congenital hand malformation [Not Recovered/Not Resolved]

NARRATIVE: CASE EVENT DATE: 20160827
